FAERS Safety Report 7275379-6 (Version None)
Quarter: 2011Q1

REPORT INFORMATION
  Report Type: 
  Country: None (occurrence: None)
  Receive Date: 20110204
  Receipt Date: 20110125
  Transmission Date: 20110831
  Serious: Yes (Other)
  Sender: FDA-Public Use
  Company Number: JP-CELGENEUS-087-21880-10122827

PATIENT
  Sex: Male
  Weight: 70.4 kg

DRUGS (14)
  1. PARIET [Concomitant]
     Indication: PROPHYLAXIS
     Route: 048
     Dates: start: 20090113
  2. PURSENNID [Concomitant]
     Route: 048
     Dates: start: 20090113
  3. ISODINE [Concomitant]
     Indication: PROPHYLAXIS
     Route: 048
     Dates: start: 20090113
  4. SELBEX [Concomitant]
     Indication: PROPHYLAXIS
     Route: 048
     Dates: start: 20090113
  5. ATELEC [Concomitant]
     Indication: HYPERTENSION
     Route: 048
     Dates: start: 19800101
  6. LICORICE EXTRACT [Concomitant]
     Dosage: 3 PACKS
     Route: 048
     Dates: start: 20081201
  7. BLOPRESS [Concomitant]
     Indication: HYPERTENSION
     Route: 048
     Dates: start: 19800101
  8. MAGLAX [Concomitant]
     Route: 048
     Dates: start: 20090113
  9. LENADEX [Suspect]
     Indication: MULTIPLE MYELOMA
     Route: 048
     Dates: start: 20101210, end: 20101217
  10. ZYLORIC [Concomitant]
     Route: 048
     Dates: start: 20090113
  11. BACTRIM [Concomitant]
     Indication: PROPHYLAXIS
     Route: 048
     Dates: start: 20090113
  12. REVLIMID [Suspect]
     Indication: MULTIPLE MYELOMA
     Route: 048
     Dates: start: 20101210, end: 20101222
  13. AMARYL [Concomitant]
     Indication: DIABETES MELLITUS
     Route: 048
     Dates: start: 20091007
  14. OXYCONTIN [Concomitant]
     Route: 048
     Dates: start: 20090119

REACTIONS (4)
  - DECREASED APPETITE [None]
  - ATRIAL FIBRILLATION [None]
  - MALAISE [None]
  - BLOOD BILIRUBIN INCREASED [None]
